FAERS Safety Report 24980790 (Version 1)
Quarter: 2025Q1

REPORT INFORMATION
  Report Type: Spontaneous
  Country: US (occurrence: None)
  Receive Date: 20250215
  Receipt Date: 20250215
  Transmission Date: 20250409
  Serious: Yes (Hospitalization)
  Sender: FDA-CTU
  Company Number: None

PATIENT
  Age: 41 Year
  Sex: Female
  Weight: 79 kg

DRUGS (3)
  1. CISPLATIN [Suspect]
     Active Substance: CISPLATIN
  2. GEMCITABINE HYDROCHLORIDE [Suspect]
     Active Substance: GEMCITABINE HYDROCHLORIDE
  3. NEULASTA [Suspect]
     Active Substance: PEGFILGRASTIM

REACTIONS (3)
  - Leukocytosis [None]
  - Sepsis [None]
  - Tachycardia [None]

NARRATIVE: CASE EVENT DATE: 20250205
